FAERS Safety Report 5107224-9 (Version None)
Quarter: 2006Q3

REPORT INFORMATION
  Report Type: 
  Country: None (occurrence: None)
  Receive Date: 20060731
  Receipt Date: 20060510
  Transmission Date: 20061208
  Serious: No
  Sender: FDA-Public Use
  Company Number: 2006PV013624

PATIENT
  Age: 64 Year
  Sex: Female
  Weight: 133.3575 kg

DRUGS (3)
  1. BYETTA [Suspect]
     Indication: DIABETES MELLITUS NON-INSULIN-DEPENDENT
     Dosage: SEE IMAGE
     Route: 058
     Dates: start: 20060301, end: 20060405
  2. BYETTA [Suspect]
     Indication: DIABETES MELLITUS NON-INSULIN-DEPENDENT
     Dosage: SEE IMAGE
     Route: 058
     Dates: start: 20060426
  3. METFORMIN HCL [Concomitant]

REACTIONS (4)
  - DRUG EFFECT DECREASED [None]
  - MEDICATION ERROR [None]
  - NAUSEA [None]
  - NO ADVERSE EFFECT [None]
